FAERS Safety Report 8388505-2 (Version None)
Quarter: 2012Q2

REPORT INFORMATION
  Report Type: 
  Country: None (occurrence: None)
  Receive Date: 20120525
  Receipt Date: 20120514
  Transmission Date: 20120825
  Serious: Yes (Life-Threatening, Hospitalization)
  Sender: FDA-Public Use
  Company Number: ES-TEVA-338753ISR

PATIENT
  Age: 71 Year
  Sex: Male

DRUGS (6)
  1. SIMVASTATIN [Concomitant]
     Indication: HYPERLIPIDAEMIA
     Dosage: 20 MILLIGRAM;
     Route: 048
     Dates: start: 20101101, end: 20110820
  2. AZILECT [Suspect]
     Indication: PARKINSON'S DISEASE
     Dosage: 1 MILLIGRAM;
     Route: 048
     Dates: start: 20070101, end: 20110820
  3. RISPERDAL [Interacting]
     Indication: PARKINSON'S DISEASE
     Dosage: 50 MICROGRAM;
     Route: 048
     Dates: start: 20110816, end: 20110820
  4. ESCITALOPRAM [Interacting]
     Indication: PARKINSON'S DISEASE
     Dosage: 10 MILLIGRAM;
     Route: 048
     Dates: start: 20080801, end: 20110820
  5. QUETIAPINE [Interacting]
     Indication: PARKINSON'S DISEASE
     Dosage: 50 MILLIGRAM;
     Route: 048
     Dates: start: 20100801, end: 20110820
  6. REQUIP [Concomitant]
     Indication: PARKINSON'S DISEASE
     Dosage: 8 MILLIGRAM;
     Route: 048
     Dates: start: 20110820

REACTIONS (2)
  - DRUG INTERACTION [None]
  - EPISTAXIS [None]
